FAERS Safety Report 21968067 (Version 1)
Quarter: 2023Q1

REPORT INFORMATION
  Report Type: Spontaneous
  Country: US (occurrence: None)
  Receive Date: 20230207
  Receipt Date: 20230207
  Transmission Date: 20230417
  Serious: Yes (Death, Hospitalization)
  Sender: FDA-Public Use
  Company Number: None

PATIENT
  Age: 52 Year
  Sex: Male

DRUGS (17)
  1. AMBRISENTAN [Suspect]
     Active Substance: AMBRISENTAN
     Indication: Pulmonary arterial hypertension
     Dosage: FREQUENCY : DAILY;?
     Route: 048
     Dates: start: 20200115, end: 20221111
  2. TADALAFIL [Concomitant]
  3. ATORVASTATIN [Concomitant]
  4. FAMOTIDINE [Concomitant]
  5. FUROSEMIDE [Concomitant]
  6. SYMBICORT [Concomitant]
  7. CARVEDILOL [Concomitant]
     Active Substance: CARVEDILOL
  8. SPIRIVA RESPIMAT [Concomitant]
  9. DORZOLAMIDE OPHT DROP [Concomitant]
  10. LATANOPROST OPHT DROP [Concomitant]
  11. ALBUTEROL HFA [Concomitant]
  12. ASPIRIN [Concomitant]
  13. OMEGA 3 FISH OIL [Concomitant]
  14. PROBIOTICS [Concomitant]
  15. VIT D3 [Concomitant]
  16. ASCORBIC ACID-ZINC-ECHINACEA [Concomitant]
  17. CALTRATE 600-D PLUS MINERALS [Concomitant]

REACTIONS (2)
  - Pulseless electrical activity [None]
  - Cardiac arrest [None]

NARRATIVE: CASE EVENT DATE: 20221110
